FAERS Safety Report 4458006-2 (Version None)
Quarter: 2004Q3

REPORT INFORMATION
  Report Type: 
  Country: None (occurrence: None)
  Receive Date: 20040902
  Receipt Date: 20040902
  Transmission Date: 20050211
  Serious: No
  Sender: FDA-Public Use
  Company Number: None

PATIENT

DRUGS (1)
  1. SIMPLY STUFFY-PSEUDOEPHEDRINE [Suspect]
     Dosage: LIQUID

REACTIONS (1)
  - MEDICATION ERROR [None]
